FAERS Safety Report 6080103-9 (Version None)
Quarter: 2009Q1

REPORT INFORMATION
  Report Type: 
  Country: None (occurrence: None)
  Receive Date: 20090217
  Receipt Date: 20090205
  Transmission Date: 20090719
  Serious: Yes (Other)
  Sender: FDA-Public Use
  Company Number: PL-PFIZER INC-2009167021

PATIENT

DRUGS (4)
  1. GENOTROPIN [Suspect]
     Dosage: 1.2 MG, 1X/DAY
     Dates: start: 20081014, end: 20081019
  2. GENOTROPIN [Suspect]
     Dosage: 1.2 MG, UNK
     Dates: start: 20081101
  3. CYCLOSPORINE [Concomitant]
  4. CALCORT [Concomitant]

REACTIONS (2)
  - HEADACHE [None]
  - VOMITING [None]
